FAERS Safety Report 5134159-8 (Version None)
Quarter: 2006Q4

REPORT INFORMATION
  Report Type: 
  Country: None (occurrence: None)
  Receive Date: 20061024
  Receipt Date: 20061020
  Transmission Date: 20070319
  Serious: Yes (Other)
  Sender: FDA-Public Use
  Company Number: JP-BOEHRINGER INGELHEIM PHARMACEUTICALS, INC.-2006-BP-12330NB

PATIENT
  Age: 58 Year
  Sex: Female

DRUGS (1)
  1. BI-SIFROL TABLETS [Suspect]
     Route: 048

REACTIONS (1)
  - PLATELET COUNT DECREASED [None]
